FAERS Safety Report 15654342 (Version 1)
Quarter: 2018Q4

REPORT INFORMATION
  Report Type: Report from Study
  Country: None (occurrence: US)
  Receive Date: 20181126
  Receipt Date: 20181126
  Transmission Date: 20190205
  Serious: Yes (Hospitalization)
  Sender: FDA-Public Use
  Company Number: US-ABBVIE-18K-163-2564305-00

PATIENT
  Age: 66 Year

DRUGS (2)
  1. HUMIRA [Suspect]
     Active Substance: ADALIMUMAB
     Indication: CROHN^S DISEASE
     Dosage: DAY 1
     Route: 058
     Dates: start: 20181018, end: 20181018
  2. HUMIRA [Suspect]
     Active Substance: ADALIMUMAB
     Dosage: DAY 15
     Route: 058
     Dates: start: 20181101, end: 20181101

REACTIONS (5)
  - Chills [Unknown]
  - Abdominal pain [Unknown]
  - Pancreatic enlargement [Unknown]
  - Pyrexia [Unknown]
  - Eye inflammation [Unknown]

NARRATIVE: CASE EVENT DATE: 201810
